FAERS Safety Report 22925695 (Version 4)
Quarter: 2024Q1

REPORT INFORMATION
  Report Type: Spontaneous
  Country: US (occurrence: US)
  Receive Date: 20230908
  Receipt Date: 20240124
  Transmission Date: 20240410
  Serious: Yes (Other)
  Sender: FDA-Public Use
  Company Number: US-PFIZER INC-PV202300151695

PATIENT
  Age: 74 Year
  Sex: Female

DRUGS (1)
  1. XELJANZ XR [Suspect]
     Active Substance: TOFACITINIB CITRATE
     Dosage: 22 MG, 1X/DAY
     Route: 048

REACTIONS (8)
  - Haemorrhage [Unknown]
  - Therapeutic product effect incomplete [Unknown]
  - Breast mass [Unknown]
  - Rash [Recovering/Resolving]
  - Blister [Unknown]
  - Oral discomfort [Unknown]
  - Localised infection [Unknown]
  - COVID-19 [Unknown]

NARRATIVE: CASE EVENT DATE: 20230920
